FAERS Safety Report 5229664-X (Version None)
Quarter: 2007Q1

REPORT INFORMATION
  Report Type: 
  Country: None (occurrence: None)
  Receive Date: 20070201
  Receipt Date: 20041030
  Transmission Date: 20070707
  Serious: Yes (Other)
  Sender: FDA-Public Use
  Company Number: 032-95

PATIENT
  Age: 57 Year
  Sex: Male

DRUGS (2)
  1. TEVETEN [Suspect]
     Indication: HYPERTENSION
     Dosage: 600 MG QD PO
     Route: 048
     Dates: start: 20040928, end: 20041012
  2. UNKNOWN ACE INHIBITOR [Concomitant]

REACTIONS (1)
  - FAECAL INCONTINENCE [None]
